FAERS Safety Report 9789112 (Version 1)
Quarter: 2013Q4

REPORT INFORMATION
  Report Type: Report from Study
  Country: US (occurrence: US)
  Receive Date: 20131230
  Receipt Date: 20131230
  Transmission Date: 20140711
  Serious: Yes (Other)
  Sender: FDA-Public Use
  Company Number: US-ABBVIE-13P-163-1181695-00

PATIENT
  Age: 42 Year
  Sex: Female
  Weight: 62.65 kg

DRUGS (9)
  1. HUMIRA [Suspect]
     Indication: CROHN^S DISEASE
     Dates: start: 201310
  2. AZATHIOPRINE [Concomitant]
     Indication: CROHN^S DISEASE
  3. PROZAC [Concomitant]
     Indication: DEPRESSION
  4. PROZAC [Concomitant]
     Indication: POST-TRAUMATIC STRESS DISORDER
  5. XANAX [Concomitant]
     Indication: ANXIETY
  6. OPANA [Concomitant]
     Indication: PAIN
     Dosage: ALTERNATES WITH PERCOCET
  7. PERCOCET [Concomitant]
     Indication: PAIN
     Dosage: ALTERNATES WITH OPANA ER
  8. STEROID CREAM [Concomitant]
     Indication: WOUND
  9. ZOLPIDEM [Concomitant]
     Indication: INSOMNIA

REACTIONS (10)
  - Vision blurred [Not Recovered/Not Resolved]
  - Migraine [Not Recovered/Not Resolved]
  - Dizziness [Not Recovered/Not Resolved]
  - Drug dose omission [Unknown]
  - Mood swings [Not Recovered/Not Resolved]
  - Amnesia [Not Recovered/Not Resolved]
  - Oedema peripheral [Not Recovered/Not Resolved]
  - Chest pain [Not Recovered/Not Resolved]
  - Drug ineffective [Not Recovered/Not Resolved]
  - Alopecia [Not Recovered/Not Resolved]
